FAERS Safety Report 24651785 (Version 1)
Quarter: 2024Q4

REPORT INFORMATION
  Report Type: Spontaneous
  Country: CA (occurrence: CA)
  Receive Date: 20241122
  Receipt Date: 20241122
  Transmission Date: 20250114
  Serious: No
  Sender: TRIS PHARMA, INC.
  Company Number: CA-TRIS PHARMA, INC.-24CA011757

PATIENT

DRUGS (1)
  1. QUILLICHEW ER [Suspect]
     Active Substance: METHYLPHENIDATE HYDROCHLORIDE
     Indication: Product used for unknown indication
     Dosage: UNK

REACTIONS (3)
  - Psychomotor hyperactivity [Unknown]
  - Restlessness [Unknown]
  - Vomiting [Unknown]
